FAERS Safety Report 10208430 (Version 1)
Quarter: 2014Q2

REPORT INFORMATION
  Report Type: Spontaneous
  Country: US (occurrence: None)
  Receive Date: 20140529
  Receipt Date: 20140529
  Transmission Date: 20141212
  Serious: Yes (Hospitalization)
  Sender: FDA-Public Use
  Company Number: None

PATIENT
  Age: 80 Year
  Sex: Male

DRUGS (1)
  1. ASPIRIN [Suspect]
     Indication: CEREBROVASCULAR ACCIDENT PROPHYLAXIS
     Route: 048
     Dates: start: 20130411, end: 20140523

REACTIONS (5)
  - Gastrointestinal haemorrhage [None]
  - Cough [None]
  - Blood pressure systolic decreased [None]
  - Haemoglobin decreased [None]
  - Adenocarcinoma gastric [None]
